FAERS Safety Report 5069395-2 (Version None)
Quarter: 2006Q3

REPORT INFORMATION
  Report Type: 
  Country: None (occurrence: None)
  Receive Date: 20060803
  Receipt Date: 20060612
  Transmission Date: 20061208
  Serious: Yes (Hospitalization)
  Sender: FDA-Public Use
  Company Number: US-JNJFOC-20060400792

PATIENT
  Sex: Male
  Weight: 65 kg

DRUGS (13)
  1. REMICADE [Suspect]
     Route: 042
  2. REMICADE [Suspect]
     Indication: DRUG DEPENDENCE
     Route: 042
  3. REMICADE [Suspect]
     Indication: CROHN'S DISEASE
     Route: 042
  4. ATIVAN [Concomitant]
  5. GABAPENTIN [Concomitant]
  6. METHOTREXATE [Concomitant]
     Indication: CROHN'S DISEASE
  7. URSODIOL [Concomitant]
  8. URSODIOL [Concomitant]
     Indication: CROHN'S DISEASE
  9. PREVACID [Concomitant]
     Indication: CROHN'S DISEASE
  10. M.V.I. [Concomitant]
  11. ELAVIL [Concomitant]
  12. ZOFRAN [Concomitant]
  13. HYOSCYAMINE [Concomitant]

REACTIONS (1)
  - ABDOMINAL PAIN [None]
